FAERS Safety Report 4793402-5 (Version None)
Quarter: 2005Q4

REPORT INFORMATION
  Report Type: 
  Country: None (occurrence: None)
  Receive Date: 20051005
  Receipt Date: 20050927
  Transmission Date: 20060501
  Serious: Yes (Hospitalization, Other)
  Sender: FDA-Public Use
  Company Number: 2005014440

PATIENT
  Sex: Male

DRUGS (5)
  1. NEURONTIN [Suspect]
     Indication: ILL-DEFINED DISORDER
  2. EFFEXOR [Suspect]
     Indication: ILL-DEFINED DISORDER
  3. PERCOCET [Suspect]
     Indication: ILL-DEFINED DISORDER
  4. IMMUNOGLOBULINS (IMMUNOGLOBULINS) [Suspect]
     Indication: ILL-DEFINED DISORDER
     Dosage: INTRAVENOUS
     Route: 042
  5. ALL OTHER THERAPEUTIC PRODUCTS [Concomitant]

REACTIONS (5)
  - CARDIAC FAILURE CONGESTIVE [None]
  - DRUG INEFFECTIVE [None]
  - DRUG INTERACTION [None]
  - NEUROPATHY [None]
  - PAIN IN EXTREMITY [None]
